FAERS Safety Report 15955166 (Version 2)
Quarter: 2019Q2

REPORT INFORMATION
  Report Type: Spontaneous
  Country: US (occurrence: US)
  Receive Date: 20190213
  Receipt Date: 20190625
  Transmission Date: 20190711
  Serious: No
  Sender: FDA-Public Use
  Company Number: US-PFIZER INC-2019064789

PATIENT
  Age: 71 Year
  Sex: Female

DRUGS (3)
  1. GOLD BOND ECZEMA RELIEF [Concomitant]
     Indication: ECZEMA
     Dosage: UNK(LIBERALLY THROUGHOUT DAY)
  2. EUCRISA [Suspect]
     Active Substance: CRISABOROLE
     Indication: PRURITUS
     Dosage: 10 MG, 2X/DAY
     Dates: start: 2018
  3. EUCRISA [Suspect]
     Active Substance: CRISABOROLE
     Indication: ECZEMA
     Dosage: UNK, 2X/DAY
     Route: 061
     Dates: start: 201804

REACTIONS (1)
  - Therapeutic product effect delayed [Not Recovered/Not Resolved]

NARRATIVE: CASE EVENT DATE: 201812
